FAERS Safety Report 21386086 (Version 4)
Quarter: 2023Q2

REPORT INFORMATION
  Report Type: Report from Study
  Country: CA (occurrence: None)
  Receive Date: 20220928
  Receipt Date: 20230620
  Transmission Date: 20230721
  Serious: Yes (Other)
  Sender: FDA-Public Use
  Company Number: CA-PFIZER INC-202201184639

PATIENT
  Age: 68 Year
  Sex: Female

DRUGS (6)
  1. METHOTREXATE [Suspect]
     Active Substance: METHOTREXATE
     Indication: Product used for unknown indication
  2. SILIQ [Suspect]
     Active Substance: BRODALUMAB
     Indication: Psoriasis
  3. SILIQ [Suspect]
     Active Substance: BRODALUMAB
     Dosage: CYCLICAL
  4. SILIQ [Suspect]
     Active Substance: BRODALUMAB
     Dosage: CYCLIC
  5. SILIQ [Suspect]
     Active Substance: BRODALUMAB
  6. CITALOPRAM [Concomitant]
     Active Substance: CITALOPRAM HYDROBROMIDE
     Route: 065

REACTIONS (10)
  - Anal squamous cell carcinoma [Not Recovered/Not Resolved]
  - Diarrhoea [Not Recovered/Not Resolved]
  - Fatigue [Not Recovered/Not Resolved]
  - Headache [Not Recovered/Not Resolved]
  - Nausea [Not Recovered/Not Resolved]
  - Malaise [Not Recovered/Not Resolved]
  - Oral pain [Not Recovered/Not Resolved]
  - COVID-19 [Not Recovered/Not Resolved]
  - Psoriasis [Not Recovered/Not Resolved]
  - Intentional product use issue [Not Recovered/Not Resolved]
